FAERS Safety Report 5447605-7 (Version None)
Quarter: 2007Q3

REPORT INFORMATION
  Report Type: 
  Country: None (occurrence: None)
  Receive Date: 20070910
  Receipt Date: 20070828
  Transmission Date: 20080115
  Serious: Yes (Other)
  Sender: FDA-Public Use
  Company Number: JP-ROCHE-490939

PATIENT
  Age: 7 Year
  Sex: Male
  Weight: 24 kg

DRUGS (11)
  1. TAMIFLU [Suspect]
     Route: 048
     Dates: start: 20070326, end: 20070326
  2. TAMIFLU [Suspect]
     Dosage: FORM: DRY SYRUP.
     Route: 048
     Dates: start: 20070323, end: 20070323
  3. TAMIFLU [Suspect]
     Dosage: DOSE INCREASED
     Route: 048
     Dates: start: 20070324, end: 20070325
  4. EXCEGRAN [Suspect]
     Indication: EPILEPSY
     Route: 048
  5. CEFZON [Concomitant]
     Dosage: FORM-ORAL FORMULATION
     Route: 048
     Dates: start: 20070322, end: 20070323
  6. CALONAL [Concomitant]
     Dosage: FREQUENCY- TAKEN AS NEEDED
     Route: 048
     Dates: start: 20070322
  7. TRANSAMIN [Concomitant]
     Route: 048
     Dates: start: 20070322, end: 20070330
  8. MUCODYNE [Concomitant]
     Route: 048
     Dates: start: 20070322, end: 20070330
  9. ASVERIN [Concomitant]
     Route: 048
     Dates: start: 20070322, end: 20070330
  10. HOKUNALIN [Concomitant]
     Dosage: DRUG RPTD AS HOKUNALIN:TAPE; FORM RPTD AS TAPE
     Route: 061
     Dates: start: 20070322, end: 20070324
  11. PERIACTIN [Concomitant]
     Route: 048
     Dates: start: 20070323, end: 20070330

REACTIONS (5)
  - ABNORMAL BEHAVIOUR [None]
  - AGITATION [None]
  - HEADACHE [None]
  - INSOMNIA [None]
  - LOSS OF CONSCIOUSNESS [None]
